FAERS Safety Report 19749421 (Version 2)
Quarter: 2021Q3

REPORT INFORMATION
  Report Type: Spontaneous
  Country: CA (occurrence: CA)
  Receive Date: 20210826
  Receipt Date: 20210831
  Transmission Date: 20211014
  Serious: Yes (Other)
  Sender: FDA-Public Use
  Company Number: CA-STRIDES ARCOLAB LIMITED-2021SP026791

PATIENT
  Age: 59 Year
  Sex: Female

DRUGS (15)
  1. URSODIOL. [Suspect]
     Active Substance: URSODIOL
     Dosage: 250 MILLIGRAM TWICE DAILY
     Route: 065
  2. URSODIOL. [Suspect]
     Active Substance: URSODIOL
     Dosage: 5 MILLIGRAM PER MILLILITRE, CUMMULATIVE DOSE?6.75
     Route: 048
  3. URSODIOL. [Suspect]
     Active Substance: URSODIOL
     Dosage: 5 MILLIGRAM PER MILLILITRE, CUMMULATIVE DOSE?25.5
     Route: 048
  4. URSODIOL. [Suspect]
     Active Substance: URSODIOL
     Dosage: 5 MILLIGRAM PER MILLILITRE, CUMMULATIVE DOSE?1.75
     Route: 048
  5. URSODIOL. [Suspect]
     Active Substance: URSODIOL
     Dosage: 500 MILLIGRAM TWICE DAILY
     Route: 065
  6. URSODIOL. [Suspect]
     Active Substance: URSODIOL
     Dosage: 5 MILLIGRAM PER MILLILITRE, CUMMULATIVE DOSE? 0.75
     Route: 048
  7. URSODIOL. [Suspect]
     Active Substance: URSODIOL
     Dosage: 20 MILLIGRAM PER MILLILITRE, CUMMULATIVE DOSE? 305.5
     Route: 048
  8. URSODIOL. [Suspect]
     Active Substance: URSODIOL
     Dosage: 5 MILLIGRAM PER MILLILITRE, CUMMULATIVE DOSE? 2.75
     Route: 048
  9. URSODIOL. [Suspect]
     Active Substance: URSODIOL
     Dosage: 20 MILLIGRAM PER MILLILITRE, CUMMULATIVE DOSE?30.5
     Route: 048
  10. URSODIOL. [Suspect]
     Active Substance: URSODIOL
     Indication: PRIMARY BILIARY CHOLANGITIS
     Dosage: 500 MILLIGRAM, BID PRIMARY
     Route: 065
  11. URSODIOL. [Suspect]
     Active Substance: URSODIOL
     Dosage: 5 MILLIGRAM PER MILLILITRE, CUMULATIVE DOSE? 0.25
     Route: 048
  12. URSODIOL. [Suspect]
     Active Substance: URSODIOL
     Dosage: 20 MILLIGRAM PER MILLILITRE, CUMMULATIVE DOSE?155.5
     Route: 048
  13. URSODIOL. [Suspect]
     Active Substance: URSODIOL
     Dosage: 5 MILLIGRAM PER MILLILITRE, CUMMULATIVE DOSE?13
     Route: 048
  14. URSODIOL. [Suspect]
     Active Substance: URSODIOL
     Dosage: 20 MILLIGRAM PER MILLILITRE, CUMMULATIVE DOSE?80.5
     Route: 048
  15. URSODIOL. [Suspect]
     Active Substance: URSODIOL
     Dosage: 20 MILLIGRAM PER MILLILITRE, CUMMULATIVE DOSE?505.5
     Route: 048

REACTIONS (6)
  - Urticaria [Recovered/Resolved]
  - Type I hypersensitivity [Recovered/Resolved]
  - Chest discomfort [Recovered/Resolved]
  - Dyspnoea [Recovered/Resolved]
  - Drug hypersensitivity [Recovered/Resolved]
  - Pruritus [Recovered/Resolved]
